FAERS Safety Report 4847578-1 (Version None)
Quarter: 2005Q4

REPORT INFORMATION
  Report Type: 
  Country: None (occurrence: None)
  Receive Date: 20051205
  Receipt Date: 20051122
  Transmission Date: 20060501
  Serious: Yes (Life-Threatening, Hospitalization)
  Sender: FDA-Public Use
  Company Number: RENA-11589

PATIENT
  Age: 69 Year
  Sex: Female

DRUGS (13)
  1. PHOSBLOCK - 250 MG TABLETS [Suspect]
     Indication: HYPERPHOSPHATAEMIA
     Dosage: 0.75 G DAILY PO
     Route: 048
     Dates: start: 20040917, end: 20050912
  2. PHOSBLOCK - 250 MG TABLETS [Suspect]
     Indication: HYPERPHOSPHATAEMIA
     Dosage: 1.5 G DAILY PO
     Route: 048
     Dates: start: 20040903, end: 20040916
  3. PHOSBLOCK - 250 MG TABLETS [Suspect]
     Indication: HYPERPHOSPHATAEMIA
     Dosage: 0.75 G DAILY PO
     Route: 048
     Dates: start: 20040820, end: 20040902
  4. CALCIUM CARBONATE [Concomitant]
  5. FAMOTIDINE [Concomitant]
  6. POLAPREZINC [Concomitant]
  7. ETHYL ICOSAPENTATE [Concomitant]
  8. PANTETHINE [Concomitant]
  9. ESTAZOLAM [Concomitant]
  10. TICLOPIDINE HCL [Concomitant]
  11. ASPIRIN [Concomitant]
  12. ENALAPRIL [Concomitant]
  13. SENNOSIDE [Concomitant]

REACTIONS (3)
  - ABDOMINAL DISTENSION [None]
  - DIVERTICULAR PERFORATION [None]
  - PERITONITIS [None]
